FAERS Safety Report 14233695 (Version 1)
Quarter: 2017Q4

REPORT INFORMATION
  Report Type: Spontaneous
  Country: CA (occurrence: CA)
  Receive Date: 20171129
  Receipt Date: 20171129
  Transmission Date: 20180321
  Serious: Yes (Death, Other)
  Sender: FDA-Public Use
  Company Number: CA-PFIZER INC-2017237624

PATIENT
  Age: 70 Year
  Sex: Female

DRUGS (8)
  1. IBRANCE [Suspect]
     Active Substance: PALBOCICLIB
     Dosage: 125 MG, CYCLIC (DAILY FOR 21 DAYS OF 28 DAYS CYCLE)
     Route: 048
     Dates: start: 20170216, end: 2017
  2. IBRANCE [Suspect]
     Active Substance: PALBOCICLIB
     Dosage: 100 MG, CYCLIC (DAILY FOR 21 DAYS OF 28 DAYS CYCLE)
     Route: 048
     Dates: start: 201703, end: 20170526
  3. HYDROMORPHONE [Concomitant]
     Active Substance: HYDROMORPHONE
     Dosage: 0.5 MG, EVERY 4 HRS
  4. LETROZOLE. [Concomitant]
     Active Substance: LETROZOLE
     Dosage: 125 MG, CYCLIC (DAILY FOR 21 DAYS OF 28 DAYS CYCLE)
     Route: 048
     Dates: start: 20170216, end: 2017
  5. NAPROXEN. [Concomitant]
     Active Substance: NAPROXEN
     Dosage: 500 MG, 2X/DAY
  6. VITAMIN B3 [Concomitant]
     Active Substance: NIACIN
     Dosage: 5000 IU, 1X/DAY
  7. LETROZOLE. [Concomitant]
     Active Substance: LETROZOLE
     Dosage: 100 MG, CYCLIC (DAILY FOR 21 DAYS OF 28 DAYS CYCLE)
     Dates: start: 200703, end: 20170526
  8. APO-ATENIDONE [Concomitant]
     Dosage: 0.5 DF, 1X/DAY

REACTIONS (1)
  - Death [Fatal]
